FAERS Safety Report 13703281 (Version 1)
Quarter: 2017Q2

REPORT INFORMATION
  Report Type: Spontaneous
  Country: JP (occurrence: JP)
  Receive Date: 20170629
  Receipt Date: 20170629
  Transmission Date: 20170830
  Serious: Yes (Other)
  Sender: FDA-Public Use
  Company Number: JP-PFIZER INC-2017249791

PATIENT
  Age: 73 Year
  Sex: Female

DRUGS (2)
  1. AZULFIDINE EN-TABS [Suspect]
     Active Substance: SULFASALAZINE
  2. METHOTREXATE SODIUM. [Suspect]
     Active Substance: METHOTREXATE SODIUM
     Dosage: 14 UNK, UNK
     Route: 048
     Dates: start: 20130306, end: 20150615

REACTIONS (1)
  - Diffuse large B-cell lymphoma [Recovered/Resolved]

NARRATIVE: CASE EVENT DATE: 201504
